FAERS Safety Report 14388726 (Version 1)
Quarter: 2018Q1

REPORT INFORMATION
  Report Type: Spontaneous
  Country: US (occurrence: US)
  Receive Date: 20180115
  Receipt Date: 20180115
  Transmission Date: 20180509
  Serious: Yes (Other)
  Sender: FDA-Public Use
  Company Number: US-SA-2017SA222399

PATIENT
  Age: 56 Year
  Sex: Female
  Weight: 86.18 kg

DRUGS (7)
  1. TAXOTERE [Suspect]
     Active Substance: DOCETAXEL
     Indication: BREAST CANCER
     Dosage: DOSE: 80 MG/2 ML
     Route: 051
     Dates: start: 20091112, end: 20091112
  2. DEXAMETHASONE. [Concomitant]
     Active Substance: DEXAMETHASONE
  3. TAXOTERE [Suspect]
     Active Substance: DOCETAXEL
     Indication: BREAST CANCER
     Dosage: 80 MG/2 ML
     Route: 051
     Dates: start: 20091007, end: 20091007
  4. PARAPLATIN [Concomitant]
     Active Substance: CARBOPLATIN
  5. DOXORUBICIN [Concomitant]
     Active Substance: DOXORUBICIN
  6. ONDANSETRON [Concomitant]
     Active Substance: ONDANSETRON
  7. ATENOLOL. [Concomitant]
     Active Substance: ATENOLOL

REACTIONS (1)
  - Alopecia [Not Recovered/Not Resolved]

NARRATIVE: CASE EVENT DATE: 20100401
